FAERS Safety Report 12930242 (Version 1)
Quarter: 2016Q4

REPORT INFORMATION
  Report Type: Spontaneous
  Country: US (occurrence: US)
  Receive Date: 20161110
  Receipt Date: 20161110
  Transmission Date: 20170207
  Serious: Yes (Other)
  Sender: FDA-Public Use
  Company Number: US-BAYER-2016-211271

PATIENT
  Age: 103 Year
  Sex: Male

DRUGS (1)
  1. PHILLIPS^ CHEWABLE TABLETS MINT [Suspect]
     Active Substance: MAGNESIUM HYDROXIDE
     Indication: CONSTIPATION
     Dosage: 3-4 TABLETS PER NIGHT

REACTIONS (2)
  - Product use issue [None]
  - Drug dependence [Not Recovered/Not Resolved]
